FAERS Safety Report 21507693 (Version 3)
Quarter: 2023Q1

REPORT INFORMATION
  Report Type: Spontaneous
  Country: US (occurrence: US)
  Receive Date: 20221026
  Receipt Date: 20230126
  Transmission Date: 20230418
  Serious: No
  Sender: FDA-Public Use
  Company Number: US-PFIZER INC-2021432593

PATIENT
  Age: 74 Year
  Sex: Female

DRUGS (4)
  1. BOSULIF [Suspect]
     Active Substance: BOSUTINIB MONOHYDRATE
     Dosage: 400 MG, CYCLIC (ONE TABLET TWO DAYS ON, ONE DAY OFF)
     Route: 048
  2. BOSULIF [Suspect]
     Active Substance: BOSUTINIB MONOHYDRATE
     Dosage: 400 MG, ALTERNATE DAY (ONE PILL EVERY OTHER DAY ALTERNATING WITH A HALF PILL EVERY OTHER DAY).
  3. BOSULIF [Suspect]
     Active Substance: BOSUTINIB MONOHYDRATE
     Dosage: 200 MG, ALTERNATE DAY (200MG, ONE PILL EVERY OTHER DAY ALTERNATING WITH 2 PILLS EVERY OTHER DAY)
  4. BOSULIF [Suspect]
     Active Substance: BOSUTINIB MONOHYDRATE
     Dosage: 400 MG, ALTERNATE DAY (200MG, ONE PILL EVERY OTHER DAY ALTERNATING WITH 2 PILLS EVERY OTHER DAY)

REACTIONS (3)
  - Speech disorder [Unknown]
  - Off label use [Unknown]
  - Wrong technique in product usage process [Unknown]
